FAERS Safety Report 5665037-3 (Version None)
Quarter: 2008Q1

REPORT INFORMATION
  Report Type: 
  Country: None (occurrence: None)
  Receive Date: 20080314
  Receipt Date: 20080303
  Transmission Date: 20080703
  Serious: Yes (Other)
  Sender: FDA-Public Use
  Company Number: FR-PFIZER INC-2008020623

PATIENT
  Sex: Female

DRUGS (2)
  1. LYRICA [Suspect]
     Indication: PAIN
  2. LYRICA [Suspect]
     Indication: NEURALGIA

REACTIONS (5)
  - ARTHRALGIA [None]
  - FEELING HOT [None]
  - JOINT SWELLING [None]
  - NEURALGIA [None]
  - PARAESTHESIA [None]
